FAERS Safety Report 5249186-X (Version None)
Quarter: 2007Q1

REPORT INFORMATION
  Report Type: 
  Country: None (occurrence: None)
  Receive Date: 20070223
  Receipt Date: 20070212
  Transmission Date: 20070707
  Serious: Yes (Hospitalization)
  Sender: FDA-Public Use
  Company Number: 2007SP001846

PATIENT
  Age: 71 Year
  Sex: Male

DRUGS (4)
  1. INTRON A [Suspect]
     Indication: MULTIPLE MYELOMA
     Dosage: 3 MIU; TIW; SC
     Route: 058
     Dates: start: 20050208, end: 20070201
  2. THALIDOMIDE [Suspect]
     Indication: MULTIPLE MYELOMA
     Dosage: SEE IMAGE
     Dates: start: 20040510, end: 20060902
  3. THALIDOMIDE [Suspect]
     Indication: MULTIPLE MYELOMA
     Dosage: SEE IMAGE
     Dates: start: 20060903, end: 20070201
  4. ZOMETA [Suspect]
     Indication: MULTIPLE MYELOMA
     Dosage: 2 MG; QM; IV
     Route: 042
     Dates: start: 20040510, end: 20070201

REACTIONS (3)
  - BALANCE DISORDER [None]
  - OSTEONECROSIS [None]
  - PARAESTHESIA [None]
